FAERS Safety Report 5117045-9 (Version None)
Quarter: 2006Q3

REPORT INFORMATION
  Report Type: 
  Country: None (occurrence: None)
  Receive Date: 20060925
  Receipt Date: 20060913
  Transmission Date: 20061208
  Serious: Yes (Other)
  Sender: FDA-Public Use
  Company Number: 2006112140

PATIENT
  Sex: Female
  Weight: 54 kg

DRUGS (1)
  1. AROMASIN [Suspect]
     Indication: BREAST CANCER
     Dosage: 25 MG (25 MG, DAILY), ORAL
     Route: 048
     Dates: start: 20050301, end: 20060501

REACTIONS (2)
  - CARDIOVASCULAR DISORDER [None]
  - DISTURBANCE IN ATTENTION [None]
